FAERS Safety Report 9033695 (Version 1)
Quarter: 2013Q1

REPORT INFORMATION
  Report Type: Spontaneous
  Country: US (occurrence: US)
  Receive Date: 20130128
  Receipt Date: 20130128
  Transmission Date: 20140127
  Serious: Yes (Other)
  Sender: FDA-Public Use
  Company Number: US-AMGEN-USASP2012079713

PATIENT
  Age: 57 Year
  Sex: Male

DRUGS (6)
  1. ENBREL [Suspect]
     Indication: PRODUCT USED FOR UNKNOWN INDICATION
     Dosage: 50 MG, QWK
     Route: 058
  2. METHOTREXAT                        /00113801/ [Concomitant]
     Dosage: 2.5 MG, UNK
  3. SULFASALAZIN [Concomitant]
     Dosage: 500 MG, UNK
  4. VITAMIN B-12 [Concomitant]
     Dosage: 1000 MCG, UNK
  5. CALCIUM 600 + D [Concomitant]
     Dosage: 600 UNK, UNK
  6. IRON [Concomitant]
     Dosage: 18 MG, UNK

REACTIONS (2)
  - Infection [Recovered/Resolved]
  - Frustration [Recovered/Resolved]
